FAERS Safety Report 5423723-4 (Version None)
Quarter: 2007Q3

REPORT INFORMATION
  Report Type: 
  Country: None (occurrence: None)
  Receive Date: 20070727
  Receipt Date: 20060119
  Transmission Date: 20080115
  Serious: Yes (Hospitalization)
  Sender: FDA-Public Use
  Company Number: THYM-10857

PATIENT
  Age: 80 Year
  Sex: Female
  Weight: 61 kg

DRUGS (21)
  1. THYMOGLOBULIN [Suspect]
     Indication: DRUG USE FOR UNKNOWN INDICATION
     Dates: start: 20051108, end: 20051114
  2. ACTONEL [Concomitant]
  3. AMICAR [Concomitant]
  4. PRINIVIL [Concomitant]
  5. MAGNESIUM OXIDE [Concomitant]
  6. NORVASC [Concomitant]
  7. PREDNISONE TAB [Concomitant]
  8. ROBAXIN [Concomitant]
  9. SANDIMMUNE [Concomitant]
  10. SYNTHROID [Concomitant]
  11. FOSAMAX [Concomitant]
  12. SENOKOT [Concomitant]
  13. NEXIUM [Concomitant]
  14. LOPRESSOR [Concomitant]
  15. LISINOPRIL [Concomitant]
  16. COLACE [Concomitant]
  17. ACYCLOVIR [Concomitant]
  18. HYDROCHLOROTHIAZIDE [Concomitant]
  19. CODEINE SUL TAB [Concomitant]
  20. CIPRO [Concomitant]
  21. VANCOMYCIN [Concomitant]

REACTIONS (1)
  - CLOSTRIDIUM DIFFICILE COLITIS [None]
